FAERS Safety Report 15644227 (Version 3)
Quarter: 2018Q4

REPORT INFORMATION
  Report Type: Spontaneous
  Country: SE (occurrence: SE)
  Receive Date: 20181121
  Receipt Date: 20181210
  Transmission Date: 20190205
  Serious: Yes (Other)
  Sender: FDA-Public Use
  Company Number: SE-PFIZER INC-2018453664

PATIENT
  Age: 77 Year
  Sex: Female
  Weight: 70 kg

DRUGS (5)
  1. BISOPROLOL [Concomitant]
     Active Substance: BISOPROLOL
     Dosage: 0.5 DF, TWICE DAILY
     Dates: start: 20170927
  2. TEGRETOL [Concomitant]
     Active Substance: CARBAMAZEPINE
     Dosage: 1 DF, ONCE DAILY
     Dates: start: 20140113
  3. FRAGMIN [Suspect]
     Active Substance: DALTEPARIN SODIUM
     Indication: DEEP VEIN THROMBOSIS
     Dosage: 15000 IU, ONCE DAILY
     Route: 058
     Dates: start: 20180820, end: 201810
  4. FRAGMIN [Suspect]
     Active Substance: DALTEPARIN SODIUM
     Dosage: 12500 IU, ONCE DAILY
     Route: 058
     Dates: start: 20181019
  5. SALURES [Concomitant]
     Active Substance: BENDROFLUMETHIAZIDE
     Dosage: 0.5 DF, TWICE DAILY
     Dates: start: 20170927

REACTIONS (13)
  - Insomnia [Unknown]
  - Skin lesion [Unknown]
  - Limb discomfort [Unknown]
  - Angina pectoris [Unknown]
  - Dizziness [Unknown]
  - Paraesthesia [Unknown]
  - Nitrite urine present [Unknown]
  - Pruritus [Recovering/Resolving]
  - C-reactive protein increased [Recovering/Resolving]
  - Urine leukocyte esterase positive [Unknown]
  - Intentional dose omission [Unknown]
  - Red blood cell sedimentation rate increased [Recovered/Resolved]
  - Abdominal pain upper [Recovering/Resolving]

NARRATIVE: CASE EVENT DATE: 2018
